FAERS Safety Report 21580731 (Version 5)
Quarter: 2023Q4

REPORT INFORMATION
  Report Type: Report from Study
  Country: US (occurrence: US)
  Receive Date: 20221111
  Receipt Date: 20231109
  Transmission Date: 20240109
  Serious: Yes (Hospitalization, Other)
  Sender: FDA-Public Use
  Company Number: US-ABBVIE-4195298

PATIENT
  Age: 72 Year
  Sex: Female
  Weight: 113.39 kg

DRUGS (6)
  1. HUMIRA [Suspect]
     Active Substance: ADALIMUMAB
     Indication: Rheumatoid arthritis
     Dosage: STRENGTH: 40 MG, CITRATE FREE
     Route: 058
     Dates: start: 20220114, end: 20221209
  2. HUMIRA [Suspect]
     Active Substance: ADALIMUMAB
     Dosage: STRENGTH: 40 MG, CITRATE FREE
     Route: 058
     Dates: start: 20230106
  3. HUMIRA [Suspect]
     Active Substance: ADALIMUMAB
     Dosage: STRENGTH: 40 MG, CITRATE FREE
     Route: 058
  4. HUMIRA [Suspect]
     Active Substance: ADALIMUMAB
     Dosage: STRENGTH: 40 MG, CITRATE FREE
     Route: 058
  5. METHOTREXATE [Concomitant]
     Active Substance: METHOTREXATE
     Indication: Product used for unknown indication
  6. METFORMIN [Concomitant]
     Active Substance: METFORMIN HYDROCHLORIDE
     Indication: Diabetes mellitus

REACTIONS (16)
  - Foot deformity [Recovering/Resolving]
  - Blister [Recovering/Resolving]
  - Foot fracture [Recovered/Resolved]
  - Arthralgia [Not Recovered/Not Resolved]
  - Hypertension [Unknown]
  - Infected skin ulcer [Recovered/Resolved]
  - Fatigue [Unknown]
  - Arthritis [Recovering/Resolving]
  - Pain [Not Recovered/Not Resolved]
  - Gastrointestinal disorder [Unknown]
  - Scoliosis [Recovering/Resolving]
  - Blood cholesterol increased [Recovering/Resolving]
  - Asthenia [Unknown]
  - Therapeutic response shortened [Unknown]
  - Drug ineffective [Unknown]
  - Intervertebral disc degeneration [Unknown]

NARRATIVE: CASE EVENT DATE: 20221101
